FAERS Safety Report 11094951 (Version 2)
Quarter: 2015Q2

REPORT INFORMATION
  Report Type: Spontaneous
  Country: US (occurrence: US)
  Receive Date: 20150506
  Receipt Date: 20150610
  Transmission Date: 20150821
  Serious: No
  Sender: FDA-Public Use
  Company Number: US-ASTRAZENECA-2015SE39813

PATIENT
  Sex: Male
  Weight: 88.5 kg

DRUGS (3)
  1. GLIMEPIRIDE. [Concomitant]
     Active Substance: GLIMEPIRIDE
     Indication: DIABETES MELLITUS
  2. BYDUREON [Suspect]
     Active Substance: EXENATIDE
     Indication: TYPE 2 DIABETES MELLITUS
     Dosage: 2MG, 4 COUNT,ONCE A WEEK
     Route: 058
     Dates: start: 201503
  3. NATEGLINCE [Concomitant]
     Indication: DIABETES MELLITUS

REACTIONS (4)
  - Blood glucose increased [Unknown]
  - Drug ineffective [Unknown]
  - Injection site mass [Unknown]
  - Blood glucose decreased [Unknown]
